FAERS Safety Report 18378836 (Version 1)
Quarter: 2020Q4

REPORT INFORMATION
  Report Type: Spontaneous
  Country: US (occurrence: US)
  Receive Date: 20201013
  Receipt Date: 20201013
  Transmission Date: 20210114
  Serious: No
  Sender: FDA-Public Use
  Company Number: US-GILEAD-2020-0497815

PATIENT
  Sex: Female

DRUGS (2)
  1. CAYSTON [Suspect]
     Active Substance: AZTREONAM
     Indication: PRODUCT USED FOR UNKNOWN INDICATION
     Dosage: UNK, 3 CYCLES
     Route: 065
  2. CAYSTON [Suspect]
     Active Substance: AZTREONAM
     Dosage: UNK, 3 CYCLES
     Route: 065

REACTIONS (1)
  - Haemoptysis [Unknown]
